FAERS Safety Report 17517347 (Version 1)
Quarter: 2020Q1

REPORT INFORMATION
  Report Type: Spontaneous
  Country: US (occurrence: US)
  Receive Date: 20200307
  Receipt Date: 20200307
  Transmission Date: 20200409
  Serious: Yes (Disabling, Other)
  Sender: FDA-Public Use
  Company Number: None

PATIENT
  Age: 42 Year
  Sex: Female

DRUGS (1)
  1. MIRENA [Suspect]
     Active Substance: LEVONORGESTREL

REACTIONS (6)
  - Intracranial pressure increased [None]
  - Dizziness [None]
  - Vision blurred [None]
  - Arrhythmia [None]
  - Arteriospasm coronary [None]
  - Nausea [None]

NARRATIVE: CASE EVENT DATE: 20191111
